FAERS Safety Report 23236604 (Version 1)
Quarter: 2023Q4

REPORT INFORMATION
  Report Type: Report from Study
  Country: US (occurrence: US)
  Receive Date: 20231128
  Receipt Date: 20231128
  Transmission Date: 20240109
  Serious: No
  Sender: FDA-Public Use
  Company Number: US-002147023-NVSC2023US249516

PATIENT
  Sex: Female

DRUGS (1)
  1. COSENTYX [Suspect]
     Active Substance: SECUKINUMAB
     Indication: Psoriasis
     Dosage: UNK
     Route: 065

REACTIONS (14)
  - Therapeutic product effect incomplete [Unknown]
  - Hidradenitis [Unknown]
  - Insomnia [Unknown]
  - Nail psoriasis [Unknown]
  - Papule [Unknown]
  - Feeling abnormal [Unknown]
  - Rash [Unknown]
  - Sinusitis [Unknown]
  - Dermatitis acneiform [Unknown]
  - Erythema [Unknown]
  - Fistula [Unknown]
  - Skin irritation [Unknown]
  - Rosacea [Unknown]
  - Rash erythematous [Unknown]
